FAERS Safety Report 9650809 (Version 1)
Quarter: 2013Q4

REPORT INFORMATION
  Report Type: Spontaneous
  Country: US (occurrence: None)
  Receive Date: 20131028
  Receipt Date: 20131028
  Transmission Date: 20140711
  Serious: Yes (Hospitalization)
  Sender: FDA-Public Use
  Company Number: None

PATIENT
  Age: 51 Year
  Sex: Female
  Weight: 68.6 kg

DRUGS (4)
  1. EVEROLIMUS [Suspect]
     Indication: IMMUNOSUPPRESSANT DRUG THERAPY
     Route: 048
     Dates: start: 20131016
  2. TACROLIMUS [Concomitant]
  3. PREDNISONE [Concomitant]
  4. CELLCEPT [Concomitant]

REACTIONS (1)
  - Thrombotic microangiopathy [None]
